FAERS Safety Report 5401283-1 (Version None)
Quarter: 2007Q3

REPORT INFORMATION
  Report Type: 
  Country: None (occurrence: None)
  Receive Date: 20070731
  Receipt Date: 20070730
  Transmission Date: 20080115
  Serious: Yes (Hospitalization)
  Sender: FDA-Public Use
  Company Number: JP-BRISTOL-MYERS SQUIBB COMPANY-13815766

PATIENT
  Age: 63 Year
  Sex: Male

DRUGS (13)
  1. TAXOL [Suspect]
     Indication: NON-SMALL CELL LUNG CANCER
     Route: 041
     Dates: start: 20070522, end: 20070622
  2. PARAPLATIN [Suspect]
     Indication: NON-SMALL CELL LUNG CANCER
     Route: 041
     Dates: start: 20070522, end: 20070622
  3. URSO 250 [Concomitant]
     Route: 048
     Dates: start: 20070528, end: 20070622
  4. GLYCYRON [Concomitant]
     Route: 048
     Dates: start: 20070528, end: 20070622
  5. LEVOFLOXACIN [Concomitant]
     Route: 048
     Dates: start: 20070602, end: 20070604
  6. KOLANTYL [Concomitant]
     Route: 048
     Dates: start: 20070605
  7. OXYCONTIN [Concomitant]
     Route: 048
     Dates: start: 20070604
  8. NAPROXEN [Concomitant]
     Route: 048
     Dates: start: 20070605, end: 20070618
  9. NOVAMIN [Concomitant]
     Route: 048
     Dates: start: 20070511, end: 20070614
  10. DEPAS [Concomitant]
     Route: 048
     Dates: start: 20070604, end: 20070605
  11. MAGMITT [Concomitant]
     Route: 048
     Dates: start: 20070511, end: 20070604
  12. MUCOSTA [Concomitant]
     Route: 048
     Dates: start: 20070519, end: 20070608
  13. LOXONIN [Concomitant]
     Route: 048
     Dates: start: 20070519, end: 20070608

REACTIONS (3)
  - FEBRILE NEUTROPENIA [None]
  - PNEUMONIA [None]
  - PNEUMONITIS [None]
